FAERS Safety Report 5912630-6 (Version None)
Quarter: 2008Q4

REPORT INFORMATION
  Report Type: 
  Country: None (occurrence: None)
  Receive Date: 20081008
  Receipt Date: 20080925
  Transmission Date: 20090506
  Serious: Yes (Death, Hospitalization, Other)
  Sender: FDA-Public Use
  Company Number: US-ELI_LILLY_AND_COMPANY-US200809005944

PATIENT
  Sex: Female

DRUGS (1)
  1. FORTEO [Suspect]
     Dosage: UNK, UNK
     Dates: start: 20080101

REACTIONS (7)
  - DEATH [None]
  - DYSPNOEA [None]
  - FALL [None]
  - OXYGEN SATURATION DECREASED [None]
  - PNEUMONIA [None]
  - RIB FRACTURE [None]
  - STERNAL FRACTURE [None]
